FAERS Safety Report 4580606-X (Version None)
Quarter: 2005Q1

REPORT INFORMATION
  Report Type: 
  Country: None (occurrence: None)
  Receive Date: 20050214
  Receipt Date: 20040422
  Transmission Date: 20050727
  Serious: No
  Sender: FDA-Public Use
  Company Number: US-GLAXOSMITHKLINE-A0508090A

PATIENT
  Age: 45 Year
  Sex: Male

DRUGS (2)
  1. LAMICTAL [Suspect]
     Indication: BIPOLAR DISORDER
     Dosage: 75MG TWICE PER DAY
     Route: 048
  2. LEXAPRO [Concomitant]

REACTIONS (2)
  - ALOPECIA [None]
  - HAIR TEXTURE ABNORMAL [None]
